FAERS Safety Report 12200578 (Version 1)
Quarter: 2016Q1

REPORT INFORMATION
  Report Type: Spontaneous
  Country: US (occurrence: US)
  Receive Date: 20160322
  Receipt Date: 20160322
  Transmission Date: 20160526
  Serious: No
  Sender: FDA-Public Use
  Company Number: US-SEPTODONT-201503138

PATIENT
  Sex: Male
  Weight: 77 kg

DRUGS (1)
  1. LIDOCAINE HYDROCHLORIDE 2% WITH EPINEPHRINE 1:100,000 INJECTION [Suspect]
     Active Substance: EPINEPHRINE\LIDOCAINE HYDROCHLORIDE
     Indication: LOCAL ANAESTHESIA
     Dosage: 1 CARTRIDGE IN RIGHT MANDIBLE?1 CARPULE INFILTRATION OF TOOTH #14 FOR ROOT RESECTION
     Route: 004
     Dates: start: 201510, end: 201510

REACTIONS (4)
  - Anxiety [Unknown]
  - Malaise [Unknown]
  - Blood pressure increased [Unknown]
  - Hyperhidrosis [Unknown]

NARRATIVE: CASE EVENT DATE: 20151218
